FAERS Safety Report 8029354-4 (Version None)
Quarter: 2012Q1

REPORT INFORMATION
  Report Type: 
  Country: None (occurrence: None)
  Receive Date: 20120106
  Receipt Date: 20120105
  Transmission Date: 20120608
  Serious: Yes (Hospitalization)
  Sender: FDA-Public Use
  Company Number: US-ABBOTT-12P-163-0889331-00

PATIENT
  Sex: Male
  Weight: 106.69 kg

DRUGS (9)
  1. METOPROLOL SUCCINATE [Concomitant]
     Indication: PRODUCT USED FOR UNKNOWN INDICATION
  2. PERDAXA [Concomitant]
     Indication: PRODUCT USED FOR UNKNOWN INDICATION
  3. ASPIRIN [Concomitant]
     Indication: PRODUCT USED FOR UNKNOWN INDICATION
  4. DIGOXIN [Concomitant]
     Indication: HEART RATE IRREGULAR
  5. TRICOR [Concomitant]
     Indication: PRODUCT USED FOR UNKNOWN INDICATION
  6. FISH OIL [Concomitant]
     Indication: PRODUCT USED FOR UNKNOWN INDICATION
     Dosage: 3 TABLETS; 1 IN 1 D
  7. NIASPAN [Suspect]
     Indication: PRODUCT USED FOR UNKNOWN INDICATION
  8. DIGOXIN [Concomitant]
     Indication: ATRIAL FIBRILLATION
  9. LOVASTATIN [Concomitant]
     Indication: PRODUCT USED FOR UNKNOWN INDICATION

REACTIONS (2)
  - ARTERIAL THROMBOSIS LIMB [None]
  - HOT FLUSH [None]
